FAERS Safety Report 13581788 (Version 1)
Quarter: 2017Q2

REPORT INFORMATION
  Report Type: Report from Study
  Country: BR (occurrence: BR)
  Receive Date: 20170525
  Receipt Date: 20170525
  Transmission Date: 20170830
  Serious: Yes (Hospitalization, Other)
  Sender: FDA-Public Use
  Company Number: BR-JNJFOC-20161118903

PATIENT
  Age: 20 Year
  Sex: Male
  Weight: 110 kg

DRUGS (5)
  1. REMICADE [Suspect]
     Active Substance: INFLIXIMAB
     Indication: CROHN^S DISEASE
     Route: 042
     Dates: start: 201606
  2. BUDESONIDE W/FORMOTEROL [Concomitant]
     Active Substance: BUDESONIDE\FORMOTEROL
     Route: 065
  3. AZATHIOPRINE. [Concomitant]
     Active Substance: AZATHIOPRINE
     Route: 065
  4. NITAZOXANIDE [Concomitant]
     Active Substance: NITAZOXANIDE
     Route: 065
  5. REMICADE [Suspect]
     Active Substance: INFLIXIMAB
     Indication: CROHN^S DISEASE
     Route: 042
     Dates: start: 20160711

REACTIONS (20)
  - Appendicectomy [Recovering/Resolving]
  - Large intestinal stenosis [Recovering/Resolving]
  - Pneumonia [Not Recovered/Not Resolved]
  - Procedural pain [Unknown]
  - Off label use [Unknown]
  - Disease progression [Unknown]
  - Procedural vomiting [Unknown]
  - Incorrect dose administered [Unknown]
  - Procedural pain [Unknown]
  - Drug ineffective [Unknown]
  - Drug hypersensitivity [Unknown]
  - Enteritis [Unknown]
  - Dehydration [Recovering/Resolving]
  - Post procedural diarrhoea [Unknown]
  - Ileal stenosis [Unknown]
  - Weight decreased [Unknown]
  - Paranasal sinus hypersecretion [Recovered/Resolved]
  - Cellulitis [Unknown]
  - Abdominal pain [Recovering/Resolving]
  - Postoperative fever [Unknown]

NARRATIVE: CASE EVENT DATE: 2016
